FAERS Safety Report 24153159 (Version 2)
Quarter: 2025Q4

REPORT INFORMATION
  Report Type: Spontaneous
  Country: US (occurrence: US)
  Receive Date: 20240730
  Receipt Date: 20251031
  Transmission Date: 20260119
  Serious: Yes (Hospitalization, Disabling, Other)
  Sender: ABBVIE
  Company Number: US-ABBVIE-5854866

PATIENT
  Age: 31 Year
  Sex: Male
  Weight: 72.574 kg

DRUGS (3)
  1. HUMIRA [Suspect]
     Active Substance: ADALIMUMAB
     Indication: Irritable bowel syndrome
     Dosage: DOSE FORM: SOLUTION FOR INJECTION IN PRE-FILLED PEN?FORM STRENGTH: 40 MILLIGRAM
     Route: 058
     Dates: start: 2018, end: 20240913
  2. HUMIRA [Suspect]
     Active Substance: ADALIMUMAB
     Indication: Diverticulitis
  3. HUMIRA [Suspect]
     Active Substance: ADALIMUMAB
     Indication: Crohn^s disease

REACTIONS (8)
  - Intestinal fistula [Not Recovered/Not Resolved]
  - Off label use [Unknown]
  - Appendicectomy [Recovered/Resolved]
  - Illness [Unknown]
  - Ankle fracture [Recovered/Resolved]
  - Device issue [Not Recovered/Not Resolved]
  - Joint injury [Not Recovered/Not Resolved]
  - Wrong technique in product usage process [Not Recovered/Not Resolved]

NARRATIVE: CASE EVENT DATE: 20210101
